FAERS Safety Report 8925900 (Version 1)
Quarter: 2012Q4

REPORT INFORMATION
  Report Type: 
  Country: US (occurrence: US)
  Receive Date: 20121126
  Receipt Date: 20121126
  Transmission Date: 20130627
  Serious: Yes (Life-Threatening, Hospitalization)
  Sender: FDA-Public Use
  Company Number: US-009507513-2011SP022033

PATIENT
  Age: 79 Year
  Sex: Male
  Weight: 77.3 kg

DRUGS (20)
  1. TEMOZOLOMIDE [Suspect]
     Indication: MALIGNANT GLIOMA
     Dosage: 100 mg, QD
     Route: 048
     Dates: start: 20110210, end: 20110225
  2. TEMOZOLOMIDE [Suspect]
     Dosage: 50 mg/m2, QD
  3. TEMOZOLOMIDE [Suspect]
     Dates: end: 201106
  4. AVASTIN [Suspect]
     Indication: MALIGNANT GLIOMA
     Dosage: 713 mg, QOW
     Route: 042
     Dates: start: 20110210, end: 20110221
  5. VORINOSTAT [Suspect]
     Indication: MALIGNANT GLIOMA
     Dosage: 400 mg, QOW
     Route: 048
     Dates: start: 20110210
  6. VORINOSTAT [Suspect]
     Dosage: 200 mg, UNK
  7. VORINOSTAT [Suspect]
     Dates: end: 201106
  8. SODIUM CHLORIDE [Concomitant]
     Indication: PRODUCT USED FOR UNKNOWN INDICATION
     Dosage: 500 ml, Unknown
     Route: 065
     Dates: start: 20110225
  9. DEXAMETHASONE [Concomitant]
     Indication: PRODUCT USED FOR UNKNOWN INDICATION
     Dosage: .5 mg, QD
     Route: 065
  10. LEVETIRACETAM [Concomitant]
     Indication: PRODUCT USED FOR UNKNOWN INDICATION
     Dosage: 500 mg, BID
     Route: 048
  11. ONDANSETRON [Concomitant]
     Indication: NAUSEA
     Dosage: PRN
     Route: 065
  12. LOVENOX [Concomitant]
     Indication: DEEP VEIN THROMBOSIS
     Dosage: UPDATE(11JUL2011)
     Route: 058
  13. VITAMINS (UNSPECIFIED) [Concomitant]
     Indication: PRODUCT USED FOR UNKNOWN INDICATION
     Dosage: 1 TAB DAILY
     Route: 065
  14. ALBUTEROL [Concomitant]
     Indication: PRODUCT USED FOR UNKNOWN INDICATION
     Dosage: UNK UNK, Unknown
     Route: 065
  15. MK-9214 [Concomitant]
     Indication: PRODUCT USED FOR UNKNOWN INDICATION
     Dosage: 500 mg, BID
  16. POTASSIUM (UNSPECIFIED) [Concomitant]
     Indication: PRODUCT USED FOR UNKNOWN INDICATION
     Dosage: 20 mg, QD
     Route: 065
  17. SERTRALINE HYDROCHLORIDE [Concomitant]
     Indication: PRODUCT USED FOR UNKNOWN INDICATION
     Dosage: 25 mg, hs
     Route: 065
  18. ANDRODERM [Concomitant]
     Indication: PRODUCT USED FOR UNKNOWN INDICATION
     Dosage: 5 mg, QD
     Route: 065
  19. HYDRO.C.SOD.SUC. [Concomitant]
     Indication: PRODUCT USED FOR UNKNOWN INDICATION
     Dosage: 20 mg, qam
  20. KEPPRA [Concomitant]
     Indication: PRODUCT USED FOR UNKNOWN INDICATION
     Dosage: 1000 mg, BID
     Route: 048

REACTIONS (7)
  - Hypoxia [Unknown]
  - Infection [Unknown]
  - Gait disturbance [Unknown]
  - Haemoglobin decreased [Unknown]
  - Hypophosphataemia [Unknown]
  - Cerebral haemorrhage [Unknown]
  - Hypokalaemia [Unknown]
